FAERS Safety Report 23539631 (Version 1)
Quarter: 2024Q1

REPORT INFORMATION
  Report Type: Spontaneous
  Country: US (occurrence: US)
  Receive Date: 20240219
  Receipt Date: 20240219
  Transmission Date: 20240410
  Serious: Yes (Life-Threatening, Hospitalization, Other)
  Sender: FDA-Public Use
  Company Number: US-BRACCO-2023US05373

PATIENT
  Age: 45 Year
  Sex: Male

DRUGS (4)
  1. ISOVUE 300 [Suspect]
     Active Substance: IOPAMIDOL
     Indication: Computerised tomogram
     Dosage: UNK, SINGLE
     Route: 042
     Dates: start: 20231013, end: 20231013
  2. MORPHINE [Concomitant]
     Active Substance: MORPHINE
     Dosage: 4 MG
     Dates: start: 20231013, end: 20231013
  3. SODIUM CHLORIDE [Concomitant]
     Active Substance: SODIUM CHLORIDE
     Dosage: 125 ML
     Dates: start: 20231013, end: 20231013
  4. CLONIDINE [Concomitant]
     Active Substance: CLONIDINE
     Dosage: 0.1 MG
     Route: 048
     Dates: start: 20231013, end: 20231013

REACTIONS (2)
  - Anaphylactic reaction [Unknown]
  - Cardio-respiratory arrest [Unknown]

NARRATIVE: CASE EVENT DATE: 20231013
